FAERS Safety Report 9253667 (Version 3)
Quarter: 2013Q3

REPORT INFORMATION
  Report Type: Spontaneous
  Country: US (occurrence: US)
  Receive Date: 20130425
  Receipt Date: 20130927
  Transmission Date: 20140515
  Serious: Yes (Disabling)
  Sender: FDA-Public Use
  Company Number: US-ASTRAZENECA-2013SE27622

PATIENT
  Sex: Female
  Weight: 63.5 kg

DRUGS (22)
  1. NEXIUM [Suspect]
     Route: 048
  2. LYRICA [Concomitant]
     Indication: PAIN
  3. LYRICA [Concomitant]
     Indication: PAIN
  4. OXYCODONE [Concomitant]
     Indication: PAIN
     Dosage: 5/325
  5. IBUPROFEN [Concomitant]
  6. IBUPROFEN [Concomitant]
  7. VIOXX [Concomitant]
  8. CELEBREX [Concomitant]
  9. DIFLUCAN [Concomitant]
  10. TERAZOL [Concomitant]
     Dosage: 7
  11. TERAZOL [Concomitant]
  12. AVELOX [Concomitant]
  13. ACETAMINOPHEN-COD [Concomitant]
  14. PREVACID [Concomitant]
  15. CYCLOBENZAPRINE [Concomitant]
  16. HYDROCODONE-ACETAMINOPHEN [Concomitant]
     Dosage: 5-500
  17. OXYCODONE-ACETAMINOPHEN [Concomitant]
     Dosage: 5-325
  18. SAVELLA [Concomitant]
  19. ASCORBIC ACID [Concomitant]
  20. FERROUS SULFATE [Concomitant]
  21. KARIVA 28 [Concomitant]
  22. MECLIZINE [Concomitant]

REACTIONS (4)
  - Osteoporosis [Unknown]
  - Bone disorder [Unknown]
  - Ankle fracture [Unknown]
  - Carpal tunnel syndrome [Unknown]
